FAERS Safety Report 15163267 (Version 3)
Quarter: 2018Q3

REPORT INFORMATION
  Report Type: Spontaneous
  Country: JP (occurrence: JP)
  Receive Date: 20180718
  Receipt Date: 20180820
  Transmission Date: 20181010
  Serious: Yes (Death)
  Sender: FDA-Public Use
  Company Number: JP-UCBSA-2018030838

PATIENT
  Age: 83 Year
  Sex: Male

DRUGS (3)
  1. VIMPAT [Suspect]
     Active Substance: LACOSAMIDE
     Indication: STATUS EPILEPTICUS
     Dosage: 200 MG, 2X/DAY (BID)
     Route: 048
     Dates: start: 20180131
  2. E KEPPRA [Suspect]
     Active Substance: LEVETIRACETAM
     Indication: STATUS EPILEPTICUS
     Dosage: 1000 MG, ONCE DAILY (QD)
     Route: 041
     Dates: start: 20180131, end: 20180131
  3. E KEPPRA [Suspect]
     Active Substance: LEVETIRACETAM
     Indication: STATUS EPILEPTICUS
     Dosage: 500 MG, 2X/DAY (BID)
     Route: 048
     Dates: start: 20180131

REACTIONS (2)
  - Pneumonia aspiration [Fatal]
  - Off label use [Unknown]
